FAERS Safety Report 6710410-5 (Version None)
Quarter: 2010Q2

REPORT INFORMATION
  Report Type: 
  Country: None (occurrence: None)
  Receive Date: 20100430
  Receipt Date: 20100415
  Transmission Date: 20101027
  Serious: Yes (Hospitalization)
  Sender: FDA-Public Use
  Company Number: DSJ-2010-06237

PATIENT
  Age: 63 Year
  Sex: Female

DRUGS (2)
  1. BENICAR [Suspect]
     Indication: HYPERTENSION
     Dosage: 20 MG (1 IN 1 D), PER ORAL
     Route: 048
     Dates: start: 20080101, end: 20100301
  2. OTHERS MEDICINES [Concomitant]

REACTIONS (5)
  - ANGINA PECTORIS [None]
  - BLOOD PRESSURE INCREASED [None]
  - DRUG INEFFECTIVE [None]
  - FATIGUE [None]
  - VENTRICULAR HYPERTROPHY [None]
